FAERS Safety Report 4293713-6 (Version None)
Quarter: 2004Q1

REPORT INFORMATION
  Report Type: 
  Country: None (occurrence: None)
  Receive Date: 20040212
  Receipt Date: 20031107
  Transmission Date: 20041129
  Serious: Yes (Life-Threatening, Hospitalization, Other)
  Sender: FDA-Public Use
  Company Number: US-GLAXOSMITHKLINE-A0438840A

PATIENT
  Age: 63 Year
  Sex: Female

DRUGS (4)
  1. SEREVENT [Suspect]
     Indication: ASTHMA
     Dosage: 2PUFF TWICE PER DAY
     Route: 055
     Dates: start: 19960701, end: 20031217
  2. ALBUTEROL [Concomitant]
     Indication: ASTHMA
     Dosage: 2PUFF FOUR TIMES PER DAY
     Route: 055
     Dates: start: 19910101
  3. SLO-BID [Concomitant]
     Indication: ASTHMA
     Dosage: 400MG TWICE PER DAY
     Dates: start: 19910101
  4. BECONASE AQ [Concomitant]
     Dosage: 4SPR TWICE PER DAY
     Route: 045

REACTIONS (2)
  - ASTHMA [None]
  - LOSS OF CONSCIOUSNESS [None]
